FAERS Safety Report 22156555 (Version 1)
Quarter: 2023Q1

REPORT INFORMATION
  Report Type: Spontaneous
  Country: JP (occurrence: JP)
  Receive Date: 20230330
  Receipt Date: 20230330
  Transmission Date: 20230418
  Serious: Yes (Hospitalization, Other)
  Sender: FDA-Public Use
  Company Number: JP-SA-2022SA188968

PATIENT
  Age: 4 Month
  Sex: Male
  Weight: 6.4 kg

DRUGS (15)
  1. SABRIL [Suspect]
     Active Substance: VIGABATRIN
     Indication: Infantile spasms
     Dosage: DAILY DOSE: 250 MG, BID
     Route: 048
     Dates: start: 20210205, end: 20210427
  2. SABRIL [Suspect]
     Active Substance: VIGABATRIN
     Dosage: DAILY DOSE: 320 MG, BID
     Route: 048
     Dates: start: 20210428, end: 20220111
  3. SABRIL [Suspect]
     Active Substance: VIGABATRIN
     Dosage: DAILY DOSE: 370 MG, BID
     Route: 048
     Dates: start: 20220112
  4. SABRIL [Suspect]
     Active Substance: VIGABATRIN
     Dosage: 700 MG
     Route: 048
     Dates: end: 20230305
  5. SABRIL [Suspect]
     Active Substance: VIGABATRIN
     Dosage: 600 MG
     Route: 048
     Dates: start: 20230306, end: 20230321
  6. SABRIL [Suspect]
     Active Substance: VIGABATRIN
     Dosage: 500 MG
     Route: 048
     Dates: start: 20230322
  7. LEVETIRACETAM [Concomitant]
     Active Substance: LEVETIRACETAM
     Indication: Partial seizures
     Dosage: DAILY DOSE: 100 MG
     Route: 048
     Dates: start: 20210127, end: 20210131
  8. LEVETIRACETAM [Concomitant]
     Active Substance: LEVETIRACETAM
     Indication: Partial seizures
     Dosage: DAILY DOSE: 150 MG
     Route: 048
     Dates: start: 20210201, end: 20210313
  9. LEVETIRACETAM [Concomitant]
     Active Substance: LEVETIRACETAM
     Dosage: DAILY DOSE: 200 MG
     Route: 048
     Dates: start: 20210315
  10. PHENOBARBITAL [Concomitant]
     Active Substance: PHENOBARBITAL
     Indication: Partial seizures
     Dosage: DAILY DOSE: 60 MG
     Route: 048
     Dates: start: 20210127, end: 20210203
  11. PHENOBARBITAL [Concomitant]
     Active Substance: PHENOBARBITAL
     Indication: Partial seizures
     Dosage: DAILY DOSE: 45 MG
     Route: 048
     Dates: start: 20210204, end: 20210207
  12. PHENOBARBITAL [Concomitant]
     Active Substance: PHENOBARBITAL
     Dosage: DAILY DOSE: 30 MG
     Route: 048
     Dates: start: 20210208, end: 20210223
  13. PHENOBARBITAL [Concomitant]
     Active Substance: PHENOBARBITAL
     Dosage: DAILY DOSE: 20 MG
     Route: 048
     Dates: start: 20210224, end: 20210308
  14. PHENOBARBITAL [Concomitant]
     Active Substance: PHENOBARBITAL
     Dosage: DAILY DOSE: 30 MG
     Route: 048
     Dates: start: 20210309, end: 20210311
  15. PHENOBARBITAL [Concomitant]
     Active Substance: PHENOBARBITAL
     Dosage: DAILY DOSE: 40 MG
     Route: 048
     Dates: start: 20210312

REACTIONS (3)
  - Partial seizures [Recovering/Resolving]
  - Condition aggravated [Recovering/Resolving]
  - Magnetic resonance imaging head abnormal [Unknown]

NARRATIVE: CASE EVENT DATE: 20210308
